FAERS Safety Report 7706438-9 (Version None)
Quarter: 2011Q3

REPORT INFORMATION
  Report Type: 
  Country: None (occurrence: None)
  Receive Date: 20110824
  Receipt Date: 20110815
  Transmission Date: 20111222
  Serious: Yes (Hospitalization)
  Sender: FDA-Public Use
  Company Number: US-JNJFOC-20110807210

PATIENT
  Sex: Male
  Weight: 104.33 kg

DRUGS (3)
  1. VERAPAMIL [Concomitant]
     Indication: BLOOD PRESSURE
     Route: 048
  2. ZYTIGA [Suspect]
     Indication: PROSTATE CANCER
     Route: 048
     Dates: start: 20110607
  3. GLUCOTROL [Concomitant]
     Indication: DIABETES MELLITUS
     Route: 048

REACTIONS (6)
  - ARTHROPATHY [None]
  - PALPITATIONS [None]
  - ABASIA [None]
  - HYPOKALAEMIA [None]
  - ARRHYTHMIA [None]
  - WEIGHT DECREASED [None]
